FAERS Safety Report 5590262-X (Version None)
Quarter: 2008Q1

REPORT INFORMATION
  Report Type: 
  Country: None (occurrence: None)
  Receive Date: 20080114
  Receipt Date: 20080103
  Transmission Date: 20080703
  Serious: Yes (Other)
  Sender: FDA-Public Use
  Company Number: GB-ASTRAZENECA-2007GB02623

PATIENT
  Age: 71 Year
  Sex: Female

DRUGS (12)
  1. LIDOCAINE [Suspect]
     Indication: ANAESTHESIA
     Route: 047
     Dates: start: 20070504, end: 20070504
  2. ADRENALINE [Suspect]
     Indication: EYE IRRIGATION
     Route: 047
     Dates: start: 20070504, end: 20070504
  3. BETAMETHASONE [Suspect]
     Indication: POSTOPERATIVE CARE
     Route: 047
     Dates: start: 20070501, end: 20070501
  4. CHLORAMPHENICOL [Suspect]
     Indication: CATARACT OPERATION
     Route: 047
     Dates: start: 20070501, end: 20070501
  5. CYCLOPENTOLATE HCL [Suspect]
     Indication: PREOPERATIVE CARE
     Route: 047
     Dates: start: 20070504, end: 20070504
  6. HYALURONATE SODIUM [Suspect]
     Indication: CATARACT OPERATION
     Route: 047
     Dates: start: 20070501, end: 20070501
  7. NEOMYCIN [Suspect]
     Indication: POSTOPERATIVE CARE
     Route: 047
     Dates: start: 20070501, end: 20070501
  8. OCUFEN [Suspect]
     Indication: PREOPERATIVE CARE
     Route: 047
     Dates: start: 20070501, end: 20070501
  9. PHENYLEPHRINE [Suspect]
     Indication: CATARACT OPERATION
     Route: 047
     Dates: start: 20070501, end: 20070501
  10. POVIDONE IODINE [Suspect]
     Indication: CATARACT OPERATION
     Route: 047
     Dates: start: 20070501, end: 20070501
  11. VANCOMYCIN [Suspect]
     Indication: CATARACT OPERATION
     Route: 047
     Dates: start: 20070501, end: 20070501
  12. BALANCED SALT SOLUTION [Suspect]
     Indication: EYE IRRIGATION
     Route: 047
     Dates: start: 20070501, end: 20070501

REACTIONS (1)
  - TOXIC ANTERIOR SEGMENT SYNDROME [None]
